FAERS Safety Report 12369436 (Version 1)
Quarter: 2016Q2

REPORT INFORMATION
  Report Type: Spontaneous
  Country: US (occurrence: None)
  Receive Date: 20160513
  Receipt Date: 20160513
  Transmission Date: 20160815
  Serious: Yes (Disabling)
  Sender: FDA-Public Use
  Company Number: None

PATIENT
  Age: 36 Year
  Weight: 68.49 kg

DRUGS (2)
  1. CENTRUM (MULTIVITAMIN) [Concomitant]
  2. LEVETIRACETAM. [Suspect]
     Active Substance: LEVETIRACETAM

REACTIONS (4)
  - Cough [None]
  - Rash [None]
  - Immune system disorder [None]
  - Nasopharyngitis [None]

NARRATIVE: CASE EVENT DATE: 20160510
